FAERS Safety Report 5886310-X (Version None)
Quarter: 2008Q3

REPORT INFORMATION
  Report Type: 
  Country: None (occurrence: None)
  Receive Date: 20080917
  Receipt Date: 20080911
  Transmission Date: 20090109
  Serious: Yes (Disabling)
  Sender: FDA-Public Use
  Company Number: A0747078A

PATIENT
  Age: 55 Year
  Sex: Female

DRUGS (5)
  1. VALTREX [Suspect]
     Indication: GENITAL HERPES
     Route: 048
     Dates: start: 20080806, end: 20080818
  2. EVOXAC [Concomitant]
  3. PRILOSEC [Concomitant]
  4. RESTASIS [Concomitant]
  5. MELATONIN [Concomitant]

REACTIONS (3)
  - HYPOAESTHESIA [None]
  - PARAESTHESIA [None]
  - SENSORY LOSS [None]
